FAERS Safety Report 8604379-6 (Version None)
Quarter: 2012Q3

REPORT INFORMATION
  Report Type: 
  Country: None (occurrence: None)
  Receive Date: 20120820
  Receipt Date: 20120809
  Transmission Date: 20120928
  Serious: Yes (Other)
  Sender: FDA-Public Use
  Company Number: US-BAYER-2012-081974

PATIENT
  Sex: Female

DRUGS (2)
  1. YASMIN [Suspect]
     Dosage: UNK
     Dates: start: 20010901
  2. YAZ [Suspect]
     Dosage: UNK
     Dates: start: 20010901

REACTIONS (5)
  - DEEP VEIN THROMBOSIS [None]
  - PULMONARY INFARCTION [None]
  - INJURY [None]
  - PULMONARY EMBOLISM [None]
  - PAIN [None]
